FAERS Safety Report 6892671-5 (Version None)
Quarter: 2010Q3

REPORT INFORMATION
  Report Type: 
  Country: None (occurrence: None)
  Receive Date: 20100731
  Receipt Date: 20080815
  Transmission Date: 20110219
  Serious: No
  Sender: FDA-Public Use
  Company Number: US-PFIZER INC-2008068414

PATIENT
  Sex: Male
  Weight: 32.272 kg

DRUGS (6)
  1. CAVERJECT [Suspect]
     Indication: ERECTILE DYSFUNCTION
     Dates: start: 20050101
  2. CARTIA XT [Concomitant]
  3. ANTIHYPERTENSIVES [Concomitant]
  4. CHOLESTEROL [Concomitant]
  5. OTHER RESPIRATORY SYSTEM PRODUCTS [Concomitant]
  6. WARFARIN SODIUM [Concomitant]

REACTIONS (1)
  - DRUG INEFFECTIVE [None]
